FAERS Safety Report 9215273 (Version 2)
Quarter: 2013Q2

REPORT INFORMATION
  Report Type: Spontaneous
  Country: CA (occurrence: CA)
  Receive Date: 20130405
  Receipt Date: 20130422
  Transmission Date: 20140414
  Serious: Yes (Hospitalization)
  Sender: FDA-Public Use
  Company Number: CA-GILEAD-2013-0072360

PATIENT
  Age: 22 Year
  Sex: Female

DRUGS (3)
  1. COMPLERA [Suspect]
     Indication: HIV INFECTION
     Dosage: 1 DF, QD
     Route: 048
     Dates: start: 20121009, end: 20130215
  2. ISENTRESS [Concomitant]
     Indication: HIV INFECTION
     Dosage: 2 DF, QD
     Route: 048
     Dates: start: 20121009, end: 20130215
  3. MARAVIROC [Concomitant]
     Indication: HIV INFECTION
     Dosage: UNK
     Dates: start: 20110726

REACTIONS (2)
  - Psychotic disorder [Recovered/Resolved]
  - Off label use [Recovered/Resolved]
